FAERS Safety Report 12426999 (Version 1)
Quarter: 2016Q2

REPORT INFORMATION
  Report Type: Other
  Country: US (occurrence: US)
  Receive Date: 20160601
  Receipt Date: 20160601
  Transmission Date: 20160815
  Serious: Yes (Other)
  Sender: FDA-Public Use
  Company Number: US-COL_23042_2016

PATIENT
  Age: 58 Year
  Sex: Female

DRUGS (2)
  1. COLGATE MAX FRESH CLEAN MINT [Suspect]
     Active Substance: SODIUM FLUORIDE
     Indication: DENTAL DISORDER PROPHYLAXIS
     Dosage: HALF THE HEAD OF TOOTHBRUSH/TWO TO THREE TIMES A DAY/
     Route: 048
     Dates: start: 2016, end: 201604
  2. COLGATE TOTAL WHITENING GEL [Suspect]
     Active Substance: SODIUM FLUORIDE\TRICLOSAN
     Indication: DENTAL DISORDER PROPHYLAXIS
     Dosage: HALF THE HEAD OF TOOTHBRUSH/TWO TO THREE TIMES A DAY/
     Route: 048
     Dates: start: 2016, end: 201604

REACTIONS (3)
  - Neoplasm malignant [Not Recovered/Not Resolved]
  - Nausea [Recovered/Resolved]
  - Headache [Recovered/Resolved]

NARRATIVE: CASE EVENT DATE: 2016
